FAERS Safety Report 4745433-9 (Version None)
Quarter: 2005Q3

REPORT INFORMATION
  Report Type: 
  Country: None (occurrence: None)
  Receive Date: 20050815
  Receipt Date: 20050803
  Transmission Date: 20060218
  Serious: Yes (Hospitalization, Other)
  Sender: FDA-Public Use
  Company Number: PHBS2005JP11407

PATIENT
  Age: 32 Year
  Sex: Male

DRUGS (7)
  1. VOLTAREN [Suspect]
     Dosage: 3 DF, UNK
     Route: 048
     Dates: start: 20050725
  2. LOXONIN [Concomitant]
     Indication: NASOPHARYNGITIS
     Dosage: 3 DF, UNK
     Route: 048
  3. TRANSAMIN [Suspect]
     Indication: NASOPHARYNGITIS
     Dosage: 6 DF
     Route: 048
     Dates: start: 20050725
  4. MUCOSTA [Suspect]
     Indication: NASOPHARYNGITIS
     Dosage: 3 DF
     Route: 048
  5. FLOMOX [Concomitant]
     Indication: NASOPHARYNGITIS
     Dosage: 3 DF
     Route: 048
  6. DASEN [Concomitant]
     Indication: NASOPHARYNGITIS
     Route: 048
  7. PL GRAN. [Concomitant]
     Indication: NASOPHARYNGITIS
     Route: 048

REACTIONS (11)
  - HAEMODIALYSIS [None]
  - HEPATIC FAILURE [None]
  - HEPATITIS A [None]
  - HEPATITIS ACUTE [None]
  - HEPATITIS B [None]
  - HEPATITIS C [None]
  - HEPATORENAL SYNDROME [None]
  - JAUNDICE [None]
  - LIVER DISORDER [None]
  - MALAISE [None]
  - RENAL DISORDER [None]
